FAERS Safety Report 14308335 (Version 4)
Quarter: 2018Q1

REPORT INFORMATION
  Report Type: Spontaneous
  Country: US (occurrence: US)
  Receive Date: 20171220
  Receipt Date: 20180223
  Transmission Date: 20180509
  Serious: Yes (Hospitalization, Other)
  Sender: FDA-Public Use
  Company Number: US-IMPAX LABORATORIES, INC-2017-IPXL-03708

PATIENT
  Sex: Male

DRUGS (1)
  1. RYTARY [Suspect]
     Active Substance: CARBIDOPA\LEVODOPA
     Indication: PARKINSON^S DISEASE
     Dosage: 36.5/145
     Route: 065

REACTIONS (7)
  - Weight decreased [Unknown]
  - Incorrect route of drug administration [Unknown]
  - Fracture [Not Recovered/Not Resolved]
  - Medication residue present [Unknown]
  - Fall [Unknown]
  - Dysphagia [Unknown]
  - Pneumonia aspiration [Unknown]

NARRATIVE: CASE EVENT DATE: 20171030
